FAERS Safety Report 6808870-4 (Version None)
Quarter: 2010Q2

REPORT INFORMATION
  Report Type: 
  Country: None (occurrence: None)
  Receive Date: 20100630
  Receipt Date: 20091015
  Transmission Date: 20101027
  Serious: No
  Sender: FDA-Public Use
  Company Number: US-PFIZER INC-2009284367

PATIENT
  Sex: Male
  Weight: 68.027 kg

DRUGS (1)
  1. ALPRAZOLAM [Suspect]
     Indication: ANXIETY
     Route: 048

REACTIONS (3)
  - ANXIETY [None]
  - DYSGEUSIA [None]
  - PANIC ATTACK [None]
